FAERS Safety Report 7053978-4 (Version None)
Quarter: 2010Q4

REPORT INFORMATION
  Report Type: 
  Country: None (occurrence: None)
  Receive Date: 20101015
  Receipt Date: 20101005
  Transmission Date: 20110411
  Serious: Yes (Hospitalization)
  Sender: FDA-Public Use
  Company Number: TPH-00293

PATIENT
  Sex: Female

DRUGS (6)
  1. TRIQUILAR TRIQUILAR [Suspect]
     Indication: CONTRACEPTION
     Dosage: 1 DF ORAL
     Route: 048
     Dates: start: 19990101, end: 20091001
  2. TRIQUILAR TRIQUILAR [Suspect]
     Indication: PREMENSTRUAL SYNDROME
     Dosage: 1 DF ORAL
     Route: 048
     Dates: start: 19990101, end: 20091001
  3. TRIQUILAR [Suspect]
     Indication: CONTRACEPTION
     Dosage: 1 DF ORAL
     Route: 048
     Dates: start: 20091101, end: 20100101
  4. TRIQUILAR [Suspect]
     Indication: PREMENSTRUAL SYNDROME
     Dosage: 1 DF ORAL
     Route: 048
     Dates: start: 20091101, end: 20100101
  5. TRIQUILAR [Suspect]
     Indication: CONTRACEPTION
     Dosage: 1 DF ORAL
     Route: 048
     Dates: start: 20100901
  6. TRIQUILAR [Suspect]
     Indication: PREMENSTRUAL SYNDROME
     Dosage: 1 DF ORAL
     Route: 048
     Dates: start: 20100901

REACTIONS (2)
  - METRORRHAGIA [None]
  - OVARIAN ABSCESS [None]
